FAERS Safety Report 10177386 (Version 2)
Quarter: 2014Q2

REPORT INFORMATION
  Report Type: Spontaneous
  Country: US (occurrence: US)
  Receive Date: 20140516
  Receipt Date: 20140516
  Transmission Date: 20141212
  Serious: Yes (Hospitalization)
  Sender: FDA-Public Use
  Company Number: US-CELGENEUS-163-21880-14043826

PATIENT
  Age: 90 Year
  Sex: Female
  Weight: 62.65 kg

DRUGS (1)
  1. REVLIMID [Suspect]
     Indication: PLASMA CELL MYELOMA
     Dosage: 10 MILLIGRAM
     Route: 048
     Dates: start: 201403, end: 201404

REACTIONS (2)
  - Unevaluable event [Unknown]
  - General physical health deterioration [Not Recovered/Not Resolved]
